FAERS Safety Report 24574512 (Version 1)
Quarter: 2024Q4

REPORT INFORMATION
  Report Type: Spontaneous
  Country: PL (occurrence: PL)
  Receive Date: 20241104
  Receipt Date: 20241104
  Transmission Date: 20250115
  Serious: Yes (Other)
  Sender: TEVA
  Company Number: None

PATIENT
  Age: 42 Year
  Sex: Female
  Weight: 95 kg

DRUGS (1)
  1. COPAXONE [Suspect]
     Active Substance: GLATIRAMER ACETATE
     Indication: Multiple sclerosis
     Route: 065
     Dates: start: 20200527, end: 20200828

REACTIONS (5)
  - Hypersensitivity [Recovered/Resolved]
  - Blood pressure abnormal [Recovered/Resolved]
  - Shock [Recovered/Resolved]
  - Oedema peripheral [Recovered/Resolved]
  - Face oedema [Recovered/Resolved]
